FAERS Safety Report 19561520 (Version 1)
Quarter: 2021Q3

REPORT INFORMATION
  Report Type: Spontaneous
  Country: US (occurrence: US)
  Receive Date: 20210716
  Receipt Date: 20210716
  Transmission Date: 20211014
  Serious: Yes (Hospitalization)
  Sender: FDA-Public Use
  Company Number: None

PATIENT
  Age: 46 Year
  Sex: Female
  Weight: 63.2 kg

DRUGS (1)
  1. CISPLATIN. [Suspect]
     Active Substance: CISPLATIN
     Dates: end: 20210614

REACTIONS (10)
  - Abdominal pain [None]
  - Pneumonia [None]
  - Urinary tract infection [None]
  - Generalised anxiety disorder [None]
  - Fatigue [None]
  - Dehydration [None]
  - Clostridium difficile colitis [None]
  - Asthenia [None]
  - Hypotension [None]
  - Mucosal inflammation [None]

NARRATIVE: CASE EVENT DATE: 20180618
